FAERS Safety Report 5383344-9 (Version None)
Quarter: 2007Q3

REPORT INFORMATION
  Report Type: 
  Country: None (occurrence: None)
  Receive Date: 20070710
  Receipt Date: 20070628
  Transmission Date: 20080115
  Serious: Yes (Death)
  Sender: FDA-Public Use
  Company Number: FR-PFIZER INC-2007054000

PATIENT
  Age: 74 Year
  Sex: Male

DRUGS (3)
  1. SUTENT [Suspect]
     Indication: RENAL CANCER METASTATIC
     Route: 048
     Dates: start: 20070414, end: 20070604
  2. CIPRALAN [Concomitant]
  3. ASPIRIN [Concomitant]

REACTIONS (2)
  - CARDIOGENIC SHOCK [None]
  - DYSPNOEA [None]
